FAERS Safety Report 12760215 (Version 3)
Quarter: 2018Q2

REPORT INFORMATION
  Report Type: Spontaneous
  Country: FR (occurrence: FR)
  Receive Date: 20160919
  Receipt Date: 20180419
  Transmission Date: 20180711
  Serious: Yes (Congenital Anomaly, Other)
  Sender: FDA-Public Use
  Company Number: FR-ABBVIE-16P-056-1731286-00

PATIENT
  Sex: Male

DRUGS (2)
  1. DEPAKINE CHRONO [Suspect]
     Active Substance: VALPROATE SODIUM
     Indication: MATERNAL EXPOSURE TIMING UNSPECIFIED
     Route: 064
  2. SPECIAFOLDINE [Concomitant]
     Active Substance: FOLIC ACID
     Indication: PRODUCT USED FOR UNKNOWN INDICATION

REACTIONS (13)
  - Anxiety [Unknown]
  - Autism spectrum disorder [Unknown]
  - Maxillonasal dysplasia [Recovered/Resolved]
  - Motor dysfunction [Unknown]
  - Shoulder dystocia [Unknown]
  - Congenital flat feet [Unknown]
  - Foetal exposure during pregnancy [Unknown]
  - Enuresis [Recovered/Resolved]
  - Memory impairment [Unknown]
  - Tic [Unknown]
  - Disturbance in attention [Unknown]
  - Speech disorder [Not Recovered/Not Resolved]
  - Hypertonia [Unknown]
